FAERS Safety Report 5568839-7 (Version None)
Quarter: 2007Q4

REPORT INFORMATION
  Report Type: 
  Country: None (occurrence: None)
  Receive Date: 20071220
  Receipt Date: 20070201
  Transmission Date: 20080405
  Serious: No
  Sender: FDA-Public Use
  Company Number: A0637961A

PATIENT
  Age: 60 Year
  Sex: Male

DRUGS (7)
  1. AVODART [Suspect]
     Indication: BENIGN PROSTATIC HYPERPLASIA
     Dosage: 1CAP PER DAY
     Route: 048
  2. CARDURA [Concomitant]
  3. PRILOSEC [Concomitant]
  4. VITAMINS [Concomitant]
  5. MINERAL TAB [Concomitant]
  6. SAW PALMETTO [Concomitant]
  7. LIPITOR [Concomitant]

REACTIONS (5)
  - ABDOMINAL DISTENSION [None]
  - DISTURBANCE IN SEXUAL AROUSAL [None]
  - DYSPNOEA [None]
  - SEMEN VOLUME DECREASED [None]
  - WEIGHT INCREASED [None]
